FAERS Safety Report 10163774 (Version 1)
Quarter: 2014Q2

REPORT INFORMATION
  Report Type: Spontaneous
  Country: US (occurrence: US)
  Receive Date: 20140509
  Receipt Date: 20140509
  Transmission Date: 20141212
  Serious: No
  Sender: FDA-Public Use
  Company Number: US-B.I. PHARMACEUTICALS,INC./RIDGEFIELD-2014-BI-19584BP

PATIENT
  Sex: Male

DRUGS (3)
  1. ZANTAC 150 (RANITIDINE HYDROCHLORIDE) [Suspect]
     Indication: ABDOMINAL PAIN UPPER
     Dosage: 300 MG
     Route: 048
     Dates: start: 2012
  2. AMBIEN [Concomitant]
     Route: 048
  3. VALIUM [Concomitant]
     Route: 048

REACTIONS (2)
  - Abdominal pain upper [Recovered/Resolved]
  - Amnesia [Recovered/Resolved]
